FAERS Safety Report 8070145 (Version 5)
Quarter: 2013Q1

REPORT INFORMATION
  Report Type: Report from Study
  Country: US (occurrence: US)
  Receive Date: 20110804
  Receipt Date: 20130322
  Transmission Date: 20140127
  Serious: Yes (Other)
  Sender: FDA-Public Use
  Company Number: US-RB-025493-11

PATIENT
  Age: 30 Year
  Sex: Male

DRUGS (13)
  1. BUPRENORPHINE HYDROCHLORIDE/NALOXONE HYDROCHLORIDE [Suspect]
     Indication: DRUG DEPENDENCE
     Route: 060
     Dates: start: 20110408, end: 201104
  2. BUPRENORPHINE HYDROCHLORIDE/NALOXONE HYDROCHLORIDE [Suspect]
     Dosage: ALTERNATING DOSES OF 10 AND 12 MG DAILY OF SUBOXONE FILM
     Route: 060
     Dates: start: 201104, end: 201211
  3. BUPRENORPHINE HYDROCHLORIDE/NALOXONE HYDROCHLORIDE [Suspect]
     Route: 060
     Dates: start: 201303
  4. KLONOPIN [Suspect]
     Indication: PANIC DISORDER
     Dosage: NOT TAKING AS PRESCRIBED, 90 TABS IN 2-3 DAYS
     Route: 048
     Dates: end: 2011
  5. BENZODIAZEPINES [Suspect]
     Indication: DEPENDENCE
     Dosage: UNIT DOSE VARIED; HIGH DOSES EVERY HOUR OR TWO
     Route: 065
     Dates: start: 201105, end: 201106
  6. SUBOXONE TABLET [Suspect]
     Indication: DRUG DEPENDENCE
     Route: 060
     Dates: start: 200911, end: 201011
  7. PROZAC [Concomitant]
     Indication: DEPRESSION
     Route: 065
     Dates: start: 2010
  8. LANTUS [Concomitant]
     Indication: DIABETES MELLITUS
     Route: 065
     Dates: start: 201011
  9. REGULAR INSULIN [Concomitant]
     Indication: DIABETES MELLITUS
     Dosage: VARIED DAILY
     Route: 065
  10. METFORMIN [Concomitant]
     Indication: DIABETES MELLITUS
     Route: 065
     Dates: start: 2002
  11. HUMALOG [Concomitant]
     Indication: DIABETES MELLITUS
     Dosage: 100 IU AT VARIED FREQUENCY
     Route: 065
     Dates: start: 201011
  12. LISINOPRIL [Concomitant]
     Indication: BLOOD PRESSURE ABNORMAL
     Route: 065
     Dates: start: 201210
  13. FORTESTA [Concomitant]
     Indication: BLOOD TESTOSTERONE ABNORMAL
     Dosage: DOSING DETAILS UNKNOWN
     Route: 065

REACTIONS (18)
  - Wrong technique in drug usage process [Recovered/Resolved]
  - Off label use [Recovered/Resolved]
  - Infection [Recovered/Resolved]
  - Fluid retention [Recovered/Resolved]
  - Feeling abnormal [Recovered/Resolved]
  - Dysgeusia [Recovered/Resolved]
  - Blood glucose increased [Recovered/Resolved]
  - Condition aggravated [Recovered/Resolved]
  - Drug abuse [Recovered/Resolved]
  - Stress [Recovered/Resolved]
  - Loss of consciousness [Recovered/Resolved]
  - Memory impairment [Recovered/Resolved]
  - Eye infection [Recovered/Resolved]
  - Ear infection [Recovered/Resolved]
  - Pneumonia [Recovered/Resolved]
  - Weight decreased [Recovered/Resolved]
  - Activities of daily living impaired [Recovered/Resolved]
  - Glycosylated haemoglobin increased [Recovered/Resolved]
